FAERS Safety Report 24969778 (Version 2)
Quarter: 2025Q2

REPORT INFORMATION
  Report Type: Spontaneous
  Country: US (occurrence: US)
  Receive Date: 20250214
  Receipt Date: 20250429
  Transmission Date: 20250716
  Serious: No
  Sender: NOVARTIS
  Company Number: US-002147023-NVSC2025US022906

PATIENT
  Age: 49 Year
  Sex: Male

DRUGS (1)
  1. COSENTYX [Suspect]
     Active Substance: SECUKINUMAB
     Indication: Psoriasis
     Dosage: 300 MG, QMO
     Route: 058
     Dates: start: 20240201, end: 20241215

REACTIONS (4)
  - Pigmentation disorder [Not Recovered/Not Resolved]
  - Product dose omission issue [Not Recovered/Not Resolved]
  - Dermatitis contact [Not Recovered/Not Resolved]
  - Rash [Not Recovered/Not Resolved]

NARRATIVE: CASE EVENT DATE: 20241215
